FAERS Safety Report 23970632 (Version 1)
Quarter: 2024Q2

REPORT INFORMATION
  Report Type: Spontaneous
  Country: CN (occurrence: CN)
  Receive Date: 20240613
  Receipt Date: 20240613
  Transmission Date: 20240715
  Serious: Yes (Other)
  Sender: FDA-Public Use
  Company Number: None

PATIENT
  Age: 82 Year
  Sex: Male

DRUGS (5)
  1. GLYCERIN\LECITHIN\MEDIUM-CHAIN TRIGLYCERIDES\SOYBEAN OIL [Suspect]
     Active Substance: GLYCERIN\LECITHIN\MEDIUM-CHAIN TRIGLYCERIDES\SOYBEAN OIL
     Indication: Nutritional supplementation
     Dosage: 100 ML, ONCE DAILY
     Route: 041
     Dates: start: 20240517, end: 20240523
  2. AMINO ACIDS, SOURCE UNSPECIFIED [Suspect]
     Active Substance: AMINO ACIDS, SOURCE UNSPECIFIED
     Indication: Nutritional supplementation
     Dosage: 250 ML, ONCE DAILY
     Route: 041
     Dates: start: 20240517, end: 20240523
  3. .ALPHA.-TOCOPHEROL, DL-\ERGOCALCIFEROL\PHYTONADIONE\VITAMIN A PALMITAT [Suspect]
     Active Substance: .ALPHA.-TOCOPHEROL, DL-\ERGOCALCIFEROL\PHYTONADIONE\VITAMIN A PALMITATE
     Indication: Nutritional supplementation
     Dosage: 1 PIECE, QD (DOSAGE FORM: LYOPHILIZED POWDER)
     Route: 041
     Dates: start: 20240517, end: 20240523
  4. CHLORPROMAZINE [Suspect]
     Active Substance: CHLORPROMAZINE
     Indication: Adverse event
     Dosage: (START DATE: MAY-2024)
     Route: 030
  5. PIPERACILLIN [Suspect]
     Active Substance: PIPERACILLIN
     Indication: Anti-infective therapy
     Dosage: (START DATE: MAY-2024)
     Route: 065

REACTIONS (4)
  - Hyperpyrexia [Recovering/Resolving]
  - Chills [Recovering/Resolving]
  - Blood pressure decreased [Recovering/Resolving]
  - Hyperhidrosis [Unknown]

NARRATIVE: CASE EVENT DATE: 20240523
